FAERS Safety Report 22240426 (Version 1)
Quarter: 2023Q2

REPORT INFORMATION
  Report Type: Spontaneous
  Country: US (occurrence: US)
  Receive Date: 20230421
  Receipt Date: 20230421
  Transmission Date: 20230722
  Serious: No
  Sender: FDA-Public Use
  Company Number: US-ALLERGAN-2206603US

PATIENT
  Age: 79 Year
  Sex: Female

DRUGS (3)
  1. RESTASIS [Suspect]
     Active Substance: CYCLOSPORINE
     Indication: Dry eye
     Dosage: 2 GTT, BID
     Route: 047
  2. ARMOUR THYROID [Suspect]
     Active Substance: THYROID, PORCINE
     Indication: Product used for unknown indication
     Dosage: UNK
  3. UNSPECIFIED INGREDIENT [Concomitant]
     Active Substance: UNSPECIFIED INGREDIENT
     Indication: Hypertension

REACTIONS (4)
  - Ocular discomfort [Recovering/Resolving]
  - Inappropriate schedule of product administration [Unknown]
  - Wrong product administered [Unknown]
  - Eye irritation [Recovering/Resolving]

NARRATIVE: CASE EVENT DATE: 20220221
